FAERS Safety Report 6126786-6 (Version None)
Quarter: 2009Q1

REPORT INFORMATION
  Report Type: 
  Country: None (occurrence: None)
  Receive Date: 20090320
  Receipt Date: 20090310
  Transmission Date: 20090719
  Serious: Yes (Other)
  Sender: FDA-Public Use
  Company Number: ES-PFIZER INC-2009182317

PATIENT

DRUGS (5)
  1. XALATAN [Suspect]
  2. EMCONCOR [Concomitant]
  3. TERTENSIF [Concomitant]
  4. PERINDOPRIL ERBUMINE [Concomitant]
  5. SIMVASTATIN [Concomitant]

REACTIONS (1)
  - BENIGN BREAST NEOPLASM [None]
